FAERS Safety Report 9719350 (Version 3)
Quarter: 2013Q4

REPORT INFORMATION
  Report Type: Report from Study
  Country: US (occurrence: US)
  Receive Date: 20131127
  Receipt Date: 20131204
  Transmission Date: 20140711
  Serious: Yes (Life-Threatening, Hospitalization, Other)
  Sender: FDA-Public Use
  Company Number: US-BRISTOL-MYERS SQUIBB COMPANY-19790302

PATIENT
  Age: 66 Year
  Sex: Female

DRUGS (36)
  1. CEPACOL LOZENGES [Concomitant]
     Dosage: 1 LOZENGE EVERY 2 HOURS
  2. TESSALON PERLE [Concomitant]
     Route: 048
  3. TUMS [Concomitant]
     Route: 048
  4. ROBITUSSIN DM [Concomitant]
     Route: 048
  5. DIPHENHYDRAMINE [Concomitant]
     Dosage: 25 MG P0 BEFORE TRANSFUSION
     Route: 048
  6. REGLAN [Concomitant]
     Route: 048
  7. MORPHINE [Concomitant]
     Route: 048
  8. ZOFRAN [Concomitant]
     Route: 042
  9. COMPAZINE [Concomitant]
     Route: 042
  10. OCEAN [Concomitant]
     Dosage: 1 SPRAY EACH NOSTRIL
  11. TRAMADOL [Concomitant]
     Route: 048
  12. BMS936564 [Suspect]
     Indication: ACUTE MYELOID LEUKAEMIA
     Route: 042
     Dates: start: 20131010
  13. ETOPOSIDE [Suspect]
     Indication: ACUTE MYELOID LEUKAEMIA
     Route: 042
     Dates: start: 20131017
  14. CYTARABINE [Suspect]
     Indication: ACUTE MYELOID LEUKAEMIA
     Route: 042
     Dates: start: 20131017
  15. MITOXANTRONE [Suspect]
     Indication: ACUTE MYELOID LEUKAEMIA
     Route: 042
     Dates: start: 20131017
  16. SODIUM CHLORIDE [Concomitant]
     Route: 042
  17. ORAL SWISH [Concomitant]
     Route: 048
  18. ACYCLOVIR [Concomitant]
     Route: 048
  19. DOCUSATE SODIUM\SENNOSIDES [Concomitant]
     Route: 048
  20. ESOMEPRAZOLE [Concomitant]
     Route: 042
  21. FUROSEMIDE [Concomitant]
     Route: 048
  22. LANSOPRAZOLE [Concomitant]
     Dosage: AT 7AM
     Route: 048
  23. LEVOTHYROXINE [Concomitant]
     Route: 048
  24. MAGNESIUM OXIDE [Concomitant]
     Route: 048
  25. ZOSYN [Concomitant]
     Dosage: IVPB
     Route: 042
  26. POTASSIUM PHOSPHATE+ SODIUM PHOSPHATE [Concomitant]
     Dosage: 1 PACKET
     Route: 048
  27. SODIUM CHLORIDE [Concomitant]
     Dosage: 1DF:0.65%NASAL SOLUTION,2 SPARY EACH NOSTRIL
     Route: 045
  28. ALDACTONE [Concomitant]
     Dosage: TWICE A DAY WITH MEALS
     Route: 048
  29. SUCRALFATE [Concomitant]
     Route: 048
  30. VORICONAZOLE [Concomitant]
     Dosage: 100MG PO BID
     Route: 048
  31. ALPRAZOLAM [Concomitant]
     Route: 048
  32. TYLENOL [Concomitant]
     Route: 048
  33. DUONEB [Concomitant]
     Dosage: 0.5-2.5MG/3ML INHALATION SOLUTION. NEBULIZER
     Route: 055
  34. BLISTEX [Concomitant]
     Dosage: 1 APPLICATION TO BEDSIDE
     Route: 061
  35. ALTEPLASE [Concomitant]
     Dosage: AFFECTED CATHETER
  36. BACLOFEN [Concomitant]
     Route: 048

REACTIONS (2)
  - Sepsis [Recovered/Resolved]
  - Pancreatitis acute [Recovered/Resolved]
